FAERS Safety Report 6109328-0 (Version None)
Quarter: 2009Q1

REPORT INFORMATION
  Report Type: 
  Country: None (occurrence: None)
  Receive Date: 20090309
  Receipt Date: 20090309
  Transmission Date: 20090719
  Serious: Yes (Other)
  Sender: FDA-Public Use
  Company Number: None

PATIENT
  Age: 55 Year
  Sex: Female

DRUGS (5)
  1. FLUOROURACIL [Suspect]
     Indication: BREAST CANCER
     Dosage: 810 MG/DAY IV
     Route: 042
     Dates: start: 20000529, end: 20000529
  2. DOXORUBICIN HCL [Suspect]
     Indication: BREAST CANCER
     Dosage: 81 MG/DAY IV
     Route: 042
     Dates: start: 20000529, end: 20000529
  3. METHYLPREDNISOLONE 4MG TAB [Concomitant]
  4. TROPISETRON [Concomitant]
  5. METACLOPRAMIDE [Concomitant]

REACTIONS (1)
  - PULMONARY EMBOLISM [None]
